FAERS Safety Report 7372339-1 (Version None)
Quarter: 2011Q1

REPORT INFORMATION
  Report Type: 
  Country: None (occurrence: None)
  Receive Date: 20110324
  Receipt Date: 20110315
  Transmission Date: 20110831
  Serious: Yes (Other)
  Sender: FDA-Public Use
  Company Number: B0706948A

PATIENT
  Age: 13 Year
  Sex: Male

DRUGS (1)
  1. AMPICILLIN SODIUM/SULBACTAM SODIUM [Suspect]
     Indication: PRODUCT USED FOR UNKNOWN INDICATION
     Route: 043

REACTIONS (6)
  - HYPERSENSITIVITY [None]
  - RASH [None]
  - PRURITUS [None]
  - LIVER INJURY [None]
  - JAUNDICE [None]
  - VANISHING BILE DUCT SYNDROME [None]
